FAERS Safety Report 4654354-1 (Version None)
Quarter: 2005Q2

REPORT INFORMATION
  Report Type: 
  Country: None (occurrence: None)
  Receive Date: 20050404
  Receipt Date: 20041129
  Transmission Date: 20051028
  Serious: No
  Sender: FDA-Public Use
  Company Number: USA040979050

PATIENT
  Age: 45 Year
  Sex: Male
  Weight: 61 kg

DRUGS (8)
  1. CYMBALTA [Suspect]
     Indication: DEPRESSION
     Dosage: 60 MG DAY
     Dates: start: 20040801
  2. NEXIUM [Concomitant]
  3. STRESSTABS [Concomitant]
  4. TRAZADONE (TRAZODONE) [Concomitant]
  5. STOOL SOFTENER (DOCUSATE SODIUM) [Concomitant]
  6. FIBERCON (POLYCARBOPHIL CALCIUM) [Concomitant]
  7. XANAX (ALPRAZOLAM DUM) [Concomitant]
  8. HYDROCODONE BITARTRATE [Concomitant]

REACTIONS (8)
  - ANOREXIA [None]
  - DIZZINESS [None]
  - EJACULATION FAILURE [None]
  - ERECTILE DYSFUNCTION [None]
  - INFREQUENT BOWEL MOVEMENTS [None]
  - INSOMNIA [None]
  - NASAL CONGESTION [None]
  - WEIGHT DECREASED [None]
